FAERS Safety Report 8592108-4 (Version None)
Quarter: 2012Q3

REPORT INFORMATION
  Report Type: 
  Country: None (occurrence: None)
  Receive Date: 20120814
  Receipt Date: 20120807
  Transmission Date: 20120928
  Serious: Yes (Death, Hospitalization, Other)
  Sender: FDA-Public Use
  Company Number: US-GENZYME-CLOF-1002255

PATIENT
  Age: 76 Year
  Sex: Female
  Weight: 99 kg

DRUGS (2)
  1. CLOFARABINE [Suspect]
     Dosage: 20 MG/M2, QD
     Route: 042
     Dates: start: 20120702, end: 20120706
  2. CLOFARABINE [Suspect]
     Indication: ACUTE MYELOID LEUKAEMIA
     Dosage: 30 MG/M2, QD
     Route: 042
     Dates: start: 20120601, end: 20120605

REACTIONS (9)
  - NEUTROPENIA [None]
  - STAPHYLOCOCCAL INFECTION [None]
  - RESPIRATORY FAILURE [None]
  - ASTHENIA [None]
  - ACUTE MYELOID LEUKAEMIA [None]
  - BODY TEMPERATURE INCREASED [None]
  - THERAPEUTIC RESPONSE DECREASED [None]
  - PLATELET COUNT DECREASED [None]
  - ANAEMIA [None]
